FAERS Safety Report 16530591 (Version 2)
Quarter: 2025Q3

REPORT INFORMATION
  Report Type: Spontaneous
  Country: EU (occurrence: EU)
  Receive Date: 20190704
  Receipt Date: 20250711
  Transmission Date: 20251021
  Serious: Yes (Hospitalization)
  Sender: TEVA
  Company Number: None

PATIENT
  Age: 42 Year
  Sex: Female

DRUGS (2)
  1. DIAZEPAM [Suspect]
     Active Substance: DIAZEPAM
     Indication: Product used for unknown indication
     Route: 065
     Dates: start: 201902, end: 201902
  2. PROMETHAZINE HYDROCHLORIDE\THIOUREA [Suspect]
     Active Substance: PROMETHAZINE HYDROCHLORIDE\THIOUREA
     Indication: Product used for unknown indication
     Route: 048
     Dates: start: 201902, end: 201902

REACTIONS (12)
  - Suicide attempt [Unknown]
  - Intentional overdose [Unknown]
  - Formication [Unknown]
  - Tachycardia [Unknown]
  - Agitation [Unknown]
  - Toxicity to various agents [Unknown]
  - Body temperature abnormal [Unknown]
  - Heart rate increased [Unknown]
  - Anxiety [Unknown]
  - Muscle twitching [Unknown]
  - Akathisia [Unknown]
  - Depressed level of consciousness [Unknown]

NARRATIVE: CASE EVENT DATE: 20190201
